FAERS Safety Report 5125079-3 (Version None)
Quarter: 2006Q4

REPORT INFORMATION
  Report Type: 
  Country: None (occurrence: None)
  Receive Date: 20061010
  Receipt Date: 20061010
  Transmission Date: 20070319
  Serious: Yes (Other)
  Sender: FDA-Public Use
  Company Number: None

PATIENT
  Sex: Female
  Weight: 129.2752 kg

DRUGS (2)
  1. LEVAQUIN [Suspect]
     Indication: EAR INFECTION
     Dosage: 1 TABLET QD PO
     Route: 048
     Dates: start: 20060404, end: 20060406
  2. LEVAQUIN [Suspect]
     Indication: PHARYNGITIS
     Dosage: 1 TABLET QD PO
     Route: 048
     Dates: start: 20060404, end: 20060406

REACTIONS (7)
  - ASTHENIA [None]
  - NAUSEA [None]
  - OEDEMA PERIPHERAL [None]
  - PYREXIA [None]
  - SWELLING FACE [None]
  - URTICARIA [None]
  - VOMITING [None]
